FAERS Safety Report 4750956-2 (Version None)
Quarter: 2005Q3

REPORT INFORMATION
  Report Type: 
  Country: None (occurrence: None)
  Receive Date: 20050822
  Receipt Date: 20050803
  Transmission Date: 20060218
  Serious: Yes (Hospitalization)
  Sender: FDA-Public Use
  Company Number: USA041183882

PATIENT
  Age: 77 Year
  Sex: Female
  Weight: 63 kg

DRUGS (9)
  1. HUMALOG [Suspect]
     Indication: DIABETES MELLITUS
     Dates: start: 20000101
  2. HUMULIN R [Suspect]
  3. HUMULIN N [Suspect]
  4. LANTUS [Concomitant]
  5. FLUVASTATIN SODIUM) [Concomitant]
  6. LEVOTHYROXINE SODIUM [Concomitant]
  7. AMLODIPINE BESYLATE [Concomitant]
  8. ESOMEPRAZOLE [Concomitant]
  9. VALSARTAN [Concomitant]

REACTIONS (22)
  - ABDOMINAL PAIN UPPER [None]
  - ANGIOPATHY [None]
  - ARTERIOVENOUS MALFORMATION [None]
  - ASTHENIA [None]
  - BACK PAIN [None]
  - BLOOD GLUCOSE DECREASED [None]
  - BLOOD GLUCOSE FLUCTUATION [None]
  - BLOOD GLUCOSE INCREASED [None]
  - CEREBROVASCULAR ACCIDENT [None]
  - DYSPHONIA [None]
  - FEAR [None]
  - GASTRIC DISORDER [None]
  - GASTRIC HAEMORRHAGE [None]
  - HYPERTROPHY [None]
  - MALAISE [None]
  - NERVE INJURY [None]
  - PERFORMANCE STATUS DECREASED [None]
  - PHARMACEUTICAL PRODUCT COMPLAINT [None]
  - POST PROCEDURAL COMPLICATION [None]
  - TREMOR [None]
  - VASCULAR RUPTURE [None]
  - WEIGHT DECREASED [None]
